FAERS Safety Report 13180397 (Version 2)
Quarter: 2017Q1

REPORT INFORMATION
  Report Type: Report from Study
  Country: BR (occurrence: BR)
  Receive Date: 20170202
  Receipt Date: 20170203
  Transmission Date: 20170428
  Serious: Yes (Other)
  Sender: FDA-Public Use
  Company Number: BR-JNJFOC-20170124826

PATIENT
  Age: 60 Year
  Sex: Female

DRUGS (6)
  1. CALCIUM [Concomitant]
     Active Substance: CALCIUM
     Route: 065
  2. NIFEDIPINE. [Concomitant]
     Active Substance: NIFEDIPINE
     Route: 065
  3. AZATHIOPRINE. [Suspect]
     Active Substance: AZATHIOPRINE
     Indication: PRODUCT USED FOR UNKNOWN INDICATION
     Route: 065
  4. REMICADE [Suspect]
     Active Substance: INFLIXIMAB
     Indication: CROHN^S DISEASE
     Route: 042
     Dates: start: 201508
  5. CHLORTALIDONE [Concomitant]
     Active Substance: CHLORTHALIDONE
     Route: 065
  6. QUESTRAN [Concomitant]
     Active Substance: CHOLESTYRAMINE
     Route: 065

REACTIONS (8)
  - Cough [Recovered/Resolved]
  - Somnolence [Unknown]
  - Infusion related reaction [Unknown]
  - Decreased immune responsiveness [Unknown]
  - Diarrhoea [Not Recovered/Not Resolved]
  - Tongue haemorrhage [Recovering/Resolving]
  - Tongue discolouration [Recovering/Resolving]
  - Dyspnoea [Unknown]

NARRATIVE: CASE EVENT DATE: 201508
